FAERS Safety Report 7600526-3 (Version None)
Quarter: 2011Q2

REPORT INFORMATION
  Report Type: 
  Country: None (occurrence: None)
  Receive Date: 20110629
  Receipt Date: 20110614
  Transmission Date: 20111010
  Serious: Yes (Hospitalization)
  Sender: FDA-Public Use
  Company Number: VENL20110002

PATIENT
  Sex: Male

DRUGS (3)
  1. PAROXETINE HCL [Suspect]
     Indication: DEPRESSION
  2. BUPROPION HCL [Suspect]
     Indication: DEPRESSION
  3. VENLAFAXINE HYDROCHLORIDE [Suspect]
     Indication: DEPRESSION
     Dosage: 150 MG, ORAL
     Route: 048

REACTIONS (28)
  - DRUG WITHDRAWAL SYNDROME [None]
  - CHEST DISCOMFORT [None]
  - FEAR [None]
  - TACHYCARDIA [None]
  - INSOMNIA [None]
  - AGITATION [None]
  - HYPERTENSION [None]
  - TINNITUS [None]
  - SUICIDE ATTEMPT [None]
  - DEPRESSION [None]
  - NAUSEA [None]
  - PARAESTHESIA [None]
  - DRUG DEPENDENCE [None]
  - DRUG ABUSE [None]
  - SELF-MEDICATION [None]
  - GASTROINTESTINAL DISORDER [None]
  - ANXIETY [None]
  - IMPULSIVE BEHAVIOUR [None]
  - TREMOR [None]
  - VERTIGO [None]
  - DYSPNOEA [None]
  - DECREASED APPETITE [None]
  - OVERDOSE [None]
  - SLEEP DISORDER [None]
  - ASTHENIA [None]
  - DIZZINESS [None]
  - IRRITABILITY [None]
  - HYPERHIDROSIS [None]
